FAERS Safety Report 6717340-3 (Version None)
Quarter: 2010Q2

REPORT INFORMATION
  Report Type: 
  Country: None (occurrence: None)
  Receive Date: 20100510
  Receipt Date: 20100503
  Transmission Date: 20101027
  Serious: Yes (Other)
  Sender: FDA-Public Use
  Company Number: US-SANOFI-AVENTIS-2010SA025871

PATIENT

DRUGS (2)
  1. MULTAQ [Suspect]
     Route: 048
  2. HUMULIN 70/30 [Suspect]

REACTIONS (1)
  - HYPOGLYCAEMIA [None]
